FAERS Safety Report 7936192-7 (Version None)
Quarter: 2011Q4

REPORT INFORMATION
  Report Type: 
  Country: None (occurrence: None)
  Receive Date: 20111123
  Receipt Date: 20111116
  Transmission Date: 20120403
  Serious: Yes (Other)
  Sender: FDA-Public Use
  Company Number: US-JNJFOC-20111107487

PATIENT
  Age: 79 Year
  Sex: Female
  Weight: 46.72 kg

DRUGS (8)
  1. NAPROXEN (ALEVE) [Suspect]
     Indication: PRODUCT USED FOR UNKNOWN INDICATION
     Dates: start: 20080101
  2. ACETAMINOPHEN [Suspect]
     Indication: NASOPHARYNGITIS
     Route: 048
     Dates: start: 20080101
  3. ALPHALGAN [Concomitant]
     Indication: GLAUCOMA
     Route: 047
  4. ASMANEX TWISTHALER [Concomitant]
     Indication: ASTHMA
  5. IBUPROFEN (ADVIL) [Suspect]
     Indication: PRODUCT USED FOR UNKNOWN INDICATION
     Dates: start: 20080101
  6. COSOPT [Concomitant]
     Indication: GLAUCOMA
     Route: 047
  7. SYNTHROID [Concomitant]
     Indication: THYROID DISORDER
  8. ACETAMINOPHEN [Suspect]
     Indication: COUGH
     Route: 048
     Dates: start: 20080101

REACTIONS (1)
  - ASTHMA [None]
